FAERS Safety Report 4289335-3 (Version None)
Quarter: 2004Q1

REPORT INFORMATION
  Report Type: 
  Country: None (occurrence: None)
  Receive Date: 20040210
  Receipt Date: 20040203
  Transmission Date: 20041129
  Serious: Yes (Death, Other)
  Sender: FDA-Public Use
  Company Number: PHBS2004FR01791

PATIENT
  Age: 48 Year
  Sex: Female

DRUGS (3)
  1. CYCLOSPORINE [Suspect]
  2. MYCOPHENOLATE MOFETIL [Suspect]
  3. FLUDARABINE PHOSPHATE [Concomitant]

REACTIONS (5)
  - CEREBRAL HAEMORRHAGE [None]
  - CHROMOSOME ANALYSIS ABNORMAL [None]
  - DISSEMINATED INTRAVASCULAR COAGULATION [None]
  - GRAFT VERSUS HOST DISEASE [None]
  - MYELODYSPLASTIC SYNDROME [None]
